FAERS Safety Report 6567691-0 (Version None)
Quarter: 2010Q1

REPORT INFORMATION
  Report Type: 
  Country: None (occurrence: None)
  Receive Date: 20100203
  Receipt Date: 20100128
  Transmission Date: 20100710
  Serious: Yes (Other)
  Sender: FDA-Public Use
  Company Number: US-BIOGENIDEC-2010BI003427

PATIENT
  Age: 59 Year
  Sex: Female

DRUGS (3)
  1. AVONEX [Suspect]
     Indication: MULTIPLE SCLEROSIS
     Route: 030
     Dates: start: 19990401, end: 20010101
  2. AVONEX [Suspect]
     Route: 030
     Dates: start: 20051013, end: 20080425
  3. AVONEX [Suspect]
     Route: 030
     Dates: start: 20100101

REACTIONS (2)
  - BREAST CANCER [None]
  - LYMPH GLAND INFECTION [None]
